FAERS Safety Report 15365995 (Version 1)
Quarter: 2018Q3

REPORT INFORMATION
  Report Type: Spontaneous
  Country: CA (occurrence: CA)
  Receive Date: 20180831
  Receipt Date: 20180831
  Transmission Date: 20181010
  Serious: Yes (Hospitalization)
  Sender: FDA-Public Use
  Company Number: None

PATIENT
  Age: 77 Year
  Sex: Male
  Weight: 63.5 kg

DRUGS (9)
  1. CLOPIDOGREL [Concomitant]
     Active Substance: CLOPIDOGREL BISULFATE
  2. APO?LEVOFLOXACIN 750MG (LEVOFLOXACIN) [Suspect]
     Active Substance: LEVOFLOXACIN SODIUM
     Indication: PNEUMONIA
     Dosage: ?          QUANTITY:5 PILLS;?
     Route: 048
     Dates: start: 20180522, end: 20180524
  3. TECTA [Concomitant]
     Active Substance: PANTOPRAZOLE MAGNESIUM
  4. ATORVASTATIN [Concomitant]
     Active Substance: ATORVASTATIN
  5. PREDNISONE. [Concomitant]
     Active Substance: PREDNISONE
  6. SPIRIVA [Concomitant]
     Active Substance: TIOTROPIUM BROMIDE MONOHYDRATE
  7. VALSARTAN/HCT [Concomitant]
     Active Substance: HYDROCHLOROTHIAZIDE\VALSARTAN
  8. METFORMIN [Concomitant]
     Active Substance: METFORMIN HYDROCHLORIDE
  9. BRICANYL [Concomitant]
     Active Substance: TERBUTALINE SULFATE

REACTIONS (5)
  - Tremor [None]
  - Pain [None]
  - Gait inability [None]
  - Contusion [None]
  - Myalgia [None]

NARRATIVE: CASE EVENT DATE: 20180524
